FAERS Safety Report 23258280 (Version 7)
Quarter: 2025Q2

REPORT INFORMATION
  Report Type: Report from Study
  Country: CA (occurrence: CA)
  Receive Date: 20231204
  Receipt Date: 20250630
  Transmission Date: 20250716
  Serious: Yes (Other)
  Sender: TAKEDA
  Company Number: CA-TAKEDA-2023TUS079878

PATIENT
  Sex: Female

DRUGS (3)
  1. VEDOLIZUMAB [Suspect]
     Active Substance: VEDOLIZUMAB
     Indication: Crohn^s disease
  2. VEDOLIZUMAB [Suspect]
     Active Substance: VEDOLIZUMAB
     Indication: Crohn^s disease
     Dosage: 108 MILLIGRAM, Q2WEEKS
     Dates: start: 20230928
  3. OZEMPIC [Suspect]
     Active Substance: SEMAGLUTIDE
     Indication: Product used for unknown indication

REACTIONS (17)
  - Crohn^s disease [Recovered/Resolved]
  - Psoriasis [Unknown]
  - Social problem [Unknown]
  - Impaired work ability [Unknown]
  - Diarrhoea [Unknown]
  - Soft tissue inflammation [Unknown]
  - Drug intolerance [Unknown]
  - Pain [Unknown]
  - Sinus pain [Unknown]
  - Patellofemoral pain syndrome [Unknown]
  - Product distribution issue [Unknown]
  - Frequent bowel movements [Unknown]
  - Eye inflammation [Unknown]
  - Malaise [Unknown]
  - Abdominal pain [Unknown]
  - Nasal congestion [Unknown]
  - Arthralgia [Unknown]
